FAERS Safety Report 5364404-5 (Version None)
Quarter: 2007Q2

REPORT INFORMATION
  Report Type: 
  Country: None (occurrence: None)
  Receive Date: 20070618
  Receipt Date: 20070605
  Transmission Date: 20071010
  Serious: Yes (Death, Hospitalization)
  Sender: FDA-Public Use
  Company Number: SPI200700373

PATIENT
  Age: 91 Year
  Sex: Female

DRUGS (1)
  1. AMITIZAL(LUBIPROSTONE) CAPSULE, 24MCG [Suspect]
     Indication: CONSTIPATION
     Dosage: 24 MCG, ORAL
     Route: 048

REACTIONS (1)
  - PNEUMONIA [None]
